FAERS Safety Report 4269837-6 (Version None)
Quarter: 2004Q1

REPORT INFORMATION
  Report Type: 
  Country: None (occurrence: None)
  Receive Date: 20040112
  Receipt Date: 20031226
  Transmission Date: 20041129
  Serious: Yes (Hospitalization)
  Sender: FDA-Public Use
  Company Number: 701468

PATIENT
  Age: 58 Year
  Sex: Female

DRUGS (1)
  1. AMEVIVE [Suspect]
     Indication: PSORIASIS
     Dosage: 15 MG QW IM
     Route: 030
     Dates: start: 20031101, end: 20031226

REACTIONS (3)
  - CELLULITIS [None]
  - DIABETES MELLITUS NON-INSULIN-DEPENDENT [None]
  - LYMPHATIC DISORDER [None]
